FAERS Safety Report 8225964 (Version 2)
Quarter: 2012Q4

REPORT INFORMATION
  Report Type: 
  Country: US (occurrence: US)
  Receive Date: 20111103
  Receipt Date: 20121015
  Transmission Date: 20130627
  Serious: No
  Sender: FDA-Public Use
  Company Number: US-BRISTOL-MYERS SQUIBB COMPANY-16003477

PATIENT
  Age: 25 Year
  Sex: Female
  Weight: 48 kg

DRUGS (7)
  1. KENALOG-40 INJ [Suspect]
     Indication: DERMATITIS CONTACT
     Dosage: 1 dosage form: 1ml/40mg
     Route: 030
     Dates: start: 20110701
  2. KENALOG-40 INJ [Suspect]
     Indication: PRURITUS
     Dosage: 1 dosage form: 1ml/40mg
     Route: 030
     Dates: start: 20110701
  3. PROGESTERONE [Concomitant]
  4. NORETHINDRONE [Concomitant]
     Dosage: Tablets
  5. CONCERTA [Concomitant]
     Dates: start: 201107
  6. VITAMINS [Concomitant]
  7. TYLENOL [Concomitant]

REACTIONS (1)
  - Injection site atrophy [Not Recovered/Not Resolved]
